FAERS Safety Report 7775883-8 (Version None)
Quarter: 2011Q3

REPORT INFORMATION
  Report Type: 
  Country: None (occurrence: None)
  Receive Date: 20110923
  Receipt Date: 20110912
  Transmission Date: 20111222
  Serious: Yes (Other)
  Sender: FDA-Public Use
  Company Number: GB-ELI_LILLY_AND_COMPANY-GB201109003130

PATIENT
  Sex: Female

DRUGS (3)
  1. FORTEO [Suspect]
     Indication: OSTEOPOROSIS
     Dosage: 20 UG, QD
     Route: 058
     Dates: start: 20110906
  2. WARFARIN SODIUM [Concomitant]
     Dosage: 6 MG, QD
  3. WARFARIN SODIUM [Concomitant]
     Dosage: 7 MG, QD

REACTIONS (1)
  - INTERNATIONAL NORMALISED RATIO INCREASED [None]
